FAERS Safety Report 5114735-9 (Version None)
Quarter: 2006Q3

REPORT INFORMATION
  Report Type: 
  Country: None (occurrence: None)
  Receive Date: 20060926
  Receipt Date: 20060914
  Transmission Date: 20061208
  Serious: Yes (Death, Hospitalization)
  Sender: FDA-Public Use
  Company Number: CA-ROCHE-463626

PATIENT
  Age: 44 Year
  Sex: Female

DRUGS (5)
  1. PEGASYS [Suspect]
     Indication: HEPATITIS C
     Route: 058
     Dates: start: 20050115, end: 20051115
  2. PEGASYS [Suspect]
     Route: 058
     Dates: start: 20041215, end: 20050115
  3. COPEGUS [Suspect]
     Indication: HEPATITIS C
     Dosage: DOSAGE REGIMEN REPORTED AS 2X TWICE DAILY.
     Route: 048
     Dates: start: 20041215, end: 20051115
  4. URSO FALK [Concomitant]
     Route: 048
     Dates: end: 20060815
  5. NADOLOL [Concomitant]
     Route: 048
     Dates: end: 20060815

REACTIONS (5)
  - ESCHERICHIA INFECTION [None]
  - OESOPHAGEAL VARICES HAEMORRHAGE [None]
  - PLATELET COUNT DECREASED [None]
  - PULMONARY EMBOLISM [None]
  - SUDDEN DEATH [None]
